FAERS Safety Report 6338579-5 (Version None)
Quarter: 2009Q3

REPORT INFORMATION
  Report Type: 
  Country: None (occurrence: None)
  Receive Date: 20090903
  Receipt Date: 20090820
  Transmission Date: 20100115
  Serious: Yes (Hospitalization)
  Sender: FDA-Public Use
  Company Number: TW-RANBAXY-2009RR-26647

PATIENT
  Age: 66 Year
  Sex: Female

DRUGS (2)
  1. FLUOXETINE [Suspect]
     Dosage: 20 MG, UNK
  2. MIRTAZAPINE [Suspect]
     Dosage: 30 MG, UNK

REACTIONS (2)
  - DRUG INTERACTION [None]
  - MANIA [None]
